FAERS Safety Report 4945727-8 (Version None)
Quarter: 2006Q1

REPORT INFORMATION
  Report Type: 
  Country: None (occurrence: None)
  Receive Date: 20060117
  Receipt Date: 20050408
  Transmission Date: 20060701
  Serious: Yes (Hospitalization)
  Sender: FDA-Public Use
  Company Number: A03200501020

PATIENT
  Age: 77 Year
  Sex: Male
  Weight: 68.0396 kg

DRUGS (3)
  1. PLAVIX [Suspect]
     Indication: MYOCARDIAL INFARCTION
     Dosage: 75 MG QD ORAL
     Route: 048
     Dates: start: 20040101
  2. COUMADIN [Suspect]
     Dosage: ORAL
     Route: 048
  3. PRAVACHOL [Suspect]
     Dosage: ORAL
     Route: 048

REACTIONS (4)
  - CONTUSION [None]
  - EAR HAEMORRHAGE [None]
  - EPISTAXIS [None]
  - EYE HAEMORRHAGE [None]
